FAERS Safety Report 8388696-3 (Version None)
Quarter: 2012Q2

REPORT INFORMATION
  Report Type: 
  Country: None (occurrence: None)
  Receive Date: 20120527
  Receipt Date: 20111219
  Transmission Date: 20120825
  Serious: Yes (Hospitalization, Other)
  Sender: FDA-Public Use
  Company Number: PHEH2011US013163

PATIENT
  Sex: Female
  Weight: 61.224 kg

DRUGS (1)
  1. GILENYA [Suspect]
     Dosage: 0.5 MG, QOD
     Route: 048
     Dates: start: 20110108

REACTIONS (5)
  - MUSCULAR WEAKNESS [None]
  - ASTHENIA [None]
  - ROAD TRAFFIC ACCIDENT [None]
  - INAPPROPRIATE SCHEDULE OF DRUG ADMINISTRATION [None]
  - MULTIPLE SCLEROSIS [None]
